FAERS Safety Report 4546711-9 (Version None)
Quarter: 2005Q1

REPORT INFORMATION
  Report Type: 
  Country: None (occurrence: None)
  Receive Date: 20050105
  Receipt Date: 20041222
  Transmission Date: 20050727
  Serious: Yes (Hospitalization)
  Sender: FDA-Public Use
  Company Number: 104868

PATIENT
  Age: 51 Year
  Sex: Male
  Weight: 116.5 kg

DRUGS (11)
  1. LANTHANUM CARBONATE [Suspect]
     Indication: HYPERPHOSPHATAEMIA
     Dosage: 3000 MG DAILY PO
     Route: 048
     Dates: start: 20030609
  2. AMITRIPTYLIN [Concomitant]
  3. INSULIN [Concomitant]
  4. EPOETIN BETA [Concomitant]
  5. OMEPRAZOLE [Concomitant]
  6. LORZAAR [Concomitant]
  7. CYNT [Concomitant]
  8. AMLODIPINE MESYLATE [Concomitant]
  9. SORTIS [Concomitant]
  10. CONCOR [Concomitant]
  11. CALCITRIOL [Concomitant]

REACTIONS (23)
  - ACTIVATED PARTIAL THROMBOPLASTIN TIME SHORTENED [None]
  - AORTIC ATHEROSCLEROSIS [None]
  - AORTIC VALVE INCOMPETENCE [None]
  - BLOOD PH DECREASED [None]
  - BLOOD POTASSIUM INCREASED [None]
  - BLOOD UREA DECREASED [None]
  - CHEST PAIN [None]
  - CONDITION AGGRAVATED [None]
  - DILATATION ATRIAL [None]
  - GAMMA-GLUTAMYLTRANSFERASE INCREASED [None]
  - GASTRITIS [None]
  - INTERNATIONAL NORMALISED RATIO INCREASED [None]
  - LIPASE INCREASED [None]
  - NAUSEA [None]
  - OSTEOCHONDROSIS [None]
  - OXYGEN SATURATION DECREASED [None]
  - PHARMACEUTICAL PRODUCT COMPLAINT [None]
  - PROTHROMBIN TIME PROLONGED [None]
  - REGURGITATION OF FOOD [None]
  - SEPSIS [None]
  - SPINAL OSTEOARTHRITIS [None]
  - VENTRICULAR HYPERTROPHY [None]
  - WHITE BLOOD CELL COUNT INCREASED [None]
